FAERS Safety Report 10997615 (Version 2)
Quarter: 2016Q1

REPORT INFORMATION
  Report Type: Spontaneous
  Country: IT (occurrence: IT)
  Receive Date: 20150408
  Receipt Date: 20160126
  Transmission Date: 20160525
  Serious: Yes (Hospitalization)
  Sender: FDA-Public Use
  Company Number: IT-PFIZER INC-2015115333

PATIENT
  Age: 62 Year
  Sex: Male

DRUGS (5)
  1. SUTENT [Suspect]
     Active Substance: SUNITINIB MALATE
     Indication: RENAL CANCER METASTATIC
     Dosage: 50 MG, DAILY
     Route: 048
     Dates: start: 20070201, end: 20090901
  2. TEMSIROLIMUS [Concomitant]
     Active Substance: TEMSIROLIMUS
     Indication: METASTASES TO KIDNEY
     Dosage: 25 MG, UNK
     Route: 042
     Dates: start: 20090601, end: 20100101
  3. NEXAVAR [Suspect]
     Active Substance: SORAFENIB
     Indication: RENAL CANCER METASTATIC
     Dosage: 800 MG, DAILY
     Route: 048
     Dates: start: 20110820, end: 20150301
  4. EVEROLIMUS [Concomitant]
     Active Substance: EVEROLIMUS
     Indication: METASTASES TO KIDNEY
     Dosage: 10 MG, UNK
     Route: 048
     Dates: start: 20100801, end: 20110801
  5. ZOMETA [Suspect]
     Active Substance: ZOLEDRONIC ACID
     Indication: RENAL CANCER METASTATIC
     Dosage: 4 MG, CYCLIC
     Route: 042
     Dates: start: 20100220, end: 20140509

REACTIONS (1)
  - Osteitis [Recovering/Resolving]

NARRATIVE: CASE EVENT DATE: 20140201
